FAERS Safety Report 8484235-7 (Version None)
Quarter: 2012Q3

REPORT INFORMATION
  Report Type: 
  Country: None (occurrence: None)
  Receive Date: 20120703
  Receipt Date: 20120621
  Transmission Date: 20120928
  Serious: Yes (Other)
  Sender: FDA-Public Use
  Company Number: GB-JNJFOC-20120612132

PATIENT

DRUGS (2)
  1. RISPERDAL [Suspect]
     Indication: PRODUCT USED FOR UNKNOWN INDICATION
     Route: 048
     Dates: start: 20120601
  2. CARBAMAZEPINE [Interacting]
     Indication: EPILEPSY
     Route: 065

REACTIONS (2)
  - SURGERY [None]
  - DRUG INTERACTION [None]
